FAERS Safety Report 4320600-7 (Version None)
Quarter: 2004Q1

REPORT INFORMATION
  Report Type: 
  Country: None (occurrence: None)
  Receive Date: 20040316
  Receipt Date: 20040301
  Transmission Date: 20041129
  Serious: Yes (Other)
  Sender: FDA-Public Use
  Company Number: 200410028BBE

PATIENT
  Age: 60 Year
  Sex: Female
  Weight: 61.2356 kg

DRUGS (4)
  1. BAYHEP B [Suspect]
     Indication: PROPHYLAXIS
     Dosage: INTRAMUSCULAR
     Route: 030
  2. ATENOLOL [Concomitant]
  3. ACTONEL/USA/ [Concomitant]
  4. ACID-X [Concomitant]

REACTIONS (7)
  - DERMATITIS EXFOLIATIVE [None]
  - DRY SKIN [None]
  - ERYTHEMA [None]
  - INFLAMMATION [None]
  - RASH [None]
  - SKIN ULCER [None]
  - SUNBURN [None]
